FAERS Safety Report 10897123 (Version 1)
Quarter: 2015Q1

REPORT INFORMATION
  Report Type: Spontaneous
  Country: US (occurrence: None)
  Receive Date: 20150302
  Receipt Date: 20150302
  Transmission Date: 20150721
  Serious: Yes (Other)
  Sender: FDA-Public Use
  Company Number: None

PATIENT

DRUGS (1)
  1. PROTAMINE SULFATE. [Suspect]
     Active Substance: PROTAMINE SULFATE
     Indication: PROCOAGULANT THERAPY
     Route: 042
     Dates: start: 20150225

REACTIONS (1)
  - Drug ineffective [None]

NARRATIVE: CASE EVENT DATE: 20150225
